FAERS Safety Report 4508846-6 (Version None)
Quarter: 2004Q4

REPORT INFORMATION
  Report Type: 
  Country: None (occurrence: None)
  Receive Date: 20041122
  Receipt Date: 20041122
  Transmission Date: 20050328
  Serious: Yes (Hospitalization)
  Sender: FDA-Public Use
  Company Number: None

PATIENT
  Age: 81 Year
  Sex: Male
  Weight: 69.9 kg

DRUGS (15)
  1. GATIFLOXACIN [Suspect]
     Dosage: 400 MG, 400 MG QD ORAL
     Route: 048
  2. LISINOPRIL [Concomitant]
  3. OMEPRAZOLE [Concomitant]
  4. SIMVASTATIN [Concomitant]
  5. METOPROLOL TARTRATE [Concomitant]
  6. ISOSORBIDE DINITRATE [Concomitant]
  7. FUROSEMIDE [Concomitant]
  8. CLOPIDOGREL BISULFATE [Concomitant]
  9. QININE SULFATE [Concomitant]
  10. ASPIRIN [Concomitant]
  11. ARTIFICIAL TEARS PVA 1.4%/POVIDONE (PF) [Concomitant]
  12. NITROGLYCERIN [Concomitant]
  13. ALBUTEROL [Concomitant]
  14. CLOTRIMAZOLE [Concomitant]
  15. DOCUSATE NA [Concomitant]

REACTIONS (1)
  - HYPERGLYCAEMIA [None]
